FAERS Safety Report 18447614 (Version 1)
Quarter: 2020Q4

REPORT INFORMATION
  Report Type: Spontaneous
  Country: GR (occurrence: GR)
  Receive Date: 20201030
  Receipt Date: 20201030
  Transmission Date: 20210114
  Serious: Yes (Other)
  Sender: FDA-Public Use
  Company Number: GR-PFIZER INC-2020410406

PATIENT
  Age: 48 Year
  Sex: Male
  Weight: 62 kg

DRUGS (2)
  1. MINIRIN [Concomitant]
     Active Substance: DESMOPRESSIN ACETATE
     Dosage: 1 DF, 2X/DAY
  2. GENOTROPIN [Suspect]
     Active Substance: SOMATROPIN
     Indication: CRANIOPHARYNGIOMA
     Dosage: 0.3 MG / 7 DAYS / 5.3 MG

REACTIONS (2)
  - Expired device used [Unknown]
  - Macular degeneration [Unknown]
